FAERS Safety Report 11904347 (Version 1)
Quarter: 2016Q1

REPORT INFORMATION
  Report Type: Spontaneous
  Country: US (occurrence: US)
  Receive Date: 20160108
  Receipt Date: 20160108
  Transmission Date: 20160526
  Serious: No
  Sender: FDA-Public Use
  Company Number: US-ROCHE-1560599

PATIENT
  Sex: Male

DRUGS (4)
  1. BENDAMUSTINE [Concomitant]
     Active Substance: BENDAMUSTINE
  2. IDELALISIB [Concomitant]
     Active Substance: IDELALISIB
  3. RITUXAN [Suspect]
     Active Substance: RITUXIMAB
     Indication: PRODUCT USED FOR UNKNOWN INDICATION
     Route: 065
  4. GAZYVA [Suspect]
     Active Substance: OBINUTUZUMAB
     Indication: PRODUCT USED FOR UNKNOWN INDICATION
     Route: 065

REACTIONS (3)
  - Diarrhoea [Unknown]
  - Abdominal pain [Unknown]
  - Chills [Unknown]
